FAERS Safety Report 23250934 (Version 1)
Quarter: 2023Q4

REPORT INFORMATION
  Report Type: Report from Study
  Country: US (occurrence: US)
  Receive Date: 20231201
  Receipt Date: 20231201
  Transmission Date: 20240110
  Serious: Yes (Other)
  Sender: FDA-Public Use
  Company Number: US-ALXN-A202302588AA

PATIENT
  Sex: Female

DRUGS (1)
  1. STRENSIQ [Suspect]
     Active Substance: ASFOTASE ALFA
     Indication: Hypophosphatasia
     Dosage: UNK
     Route: 065

REACTIONS (13)
  - Hip fracture [Unknown]
  - Dry eye [Unknown]
  - Tendon disorder [Unknown]
  - Fatigue [Unknown]
  - Muscular weakness [Unknown]
  - Body temperature fluctuation [Unknown]
  - Back pain [Unknown]
  - Vision blurred [Unknown]
  - Product use complaint [Unknown]
  - Visual impairment [Unknown]
  - Corneal abrasion [Unknown]
  - Foot fracture [Not Recovered/Not Resolved]
  - Injection site nodule [Unknown]

NARRATIVE: CASE EVENT DATE: 20220101
